FAERS Safety Report 7070471-3 (Version None)
Quarter: 2010Q4

REPORT INFORMATION
  Report Type: 
  Country: None (occurrence: None)
  Receive Date: 20101028
  Receipt Date: 20101028
  Transmission Date: 20110411
  Serious: Yes (Other)
  Sender: FDA-Public Use
  Company Number: None

PATIENT
  Sex: Female
  Weight: 67.586 kg

DRUGS (1)
  1. NIASPAN [Suspect]
     Indication: BLOOD CHOLESTEROL INCREASED
     Dosage: 1 TABLET BEDTIME
     Dates: start: 20101007, end: 20101011

REACTIONS (3)
  - ERYTHEMA [None]
  - PAIN [None]
  - SKIN BURNING SENSATION [None]
